FAERS Safety Report 17503614 (Version 1)
Quarter: 2020Q1

REPORT INFORMATION
  Report Type: Spontaneous
  Country: US (occurrence: US)
  Receive Date: 20200305
  Receipt Date: 20200305
  Transmission Date: 20200409
  Serious: No
  Sender: FDA-Public Use
  Company Number: US-ROCHE-2326048

PATIENT
  Age: 49 Year
  Sex: Female
  Weight: 98.06 kg

DRUGS (1)
  1. XOLAIR [Suspect]
     Active Substance: OMALIZUMAB
     Indication: CHRONIC SPONTANEOUS URTICARIA
     Route: 058
     Dates: start: 20190424, end: 20190522

REACTIONS (3)
  - Urticaria [Not Recovered/Not Resolved]
  - Product quality issue [Unknown]
  - Therapeutic product effect decreased [Unknown]
